FAERS Safety Report 4687359-5 (Version None)
Quarter: 2005Q2

REPORT INFORMATION
  Report Type: 
  Country: None (occurrence: None)
  Receive Date: 20050608
  Receipt Date: 20050527
  Transmission Date: 20051028
  Serious: Yes (Other)
  Sender: FDA-Public Use
  Company Number: 2005057353

PATIENT
  Age: 49 Year
  Sex: Female
  Weight: 101.1521 kg

DRUGS (2)
  1. BEXTRA [Suspect]
     Indication: PAIN
     Dosage: 20 MG (10 MG, 2 IN 1 D), ORAL
     Route: 048
     Dates: start: 20040801
  2. NADOLOL [Concomitant]

REACTIONS (4)
  - DRUG INEFFECTIVE [None]
  - HEART RATE ABNORMAL [None]
  - HYPERTENSION [None]
  - RASH [None]
